FAERS Safety Report 9028098 (Version 3)
Quarter: 2013Q1

REPORT INFORMATION
  Report Type: Spontaneous
  Country: SE (occurrence: SE)
  Receive Date: 20130123
  Receipt Date: 20130319
  Transmission Date: 20140127
  Serious: Yes (Other)
  Sender: FDA-Public Use
  Company Number: PHHY2013SE005425

PATIENT
  Age: 74 Year
  Sex: Male

DRUGS (8)
  1. GLIVEC [Suspect]
     Indication: CHRONIC MYELOID LEUKAEMIA
     Dosage: 400 MG/DAY
     Route: 048
     Dates: start: 201009, end: 20101207
  2. GLIVEC [Suspect]
     Dosage: 400 MG/DAY
     Route: 048
     Dates: start: 20120229, end: 20130118
  3. TROMBYL [Concomitant]
     Dosage: 75 MG(1TABLET PER DAY)
  4. IMDUR [Concomitant]
     Dosage: 60 MG(1TABLET PER DAY)
  5. METOPROLOL [Concomitant]
     Dosage: 50 MG(1TABLET PER DAY)
  6. ATACAND [Concomitant]
     Dosage: 32 MG(1TABLET PER DAY)
  7. CRESTOR [Concomitant]
     Dosage: 10 MG(1TABLET PER DAY)
  8. NITROLINGUAL-SPRAY [Concomitant]
     Dosage: UNK UKN, UNK

REACTIONS (3)
  - Anosmia [Not Recovered/Not Resolved]
  - Ageusia [Not Recovered/Not Resolved]
  - Pneumonia [Unknown]
